FAERS Safety Report 11499284 (Version 1)
Quarter: 2015Q3

REPORT INFORMATION
  Report Type: Report from Study
  Country: DE (occurrence: DE)
  Receive Date: 20150913
  Receipt Date: 20150913
  Transmission Date: 20151125
  Serious: Yes (Hospitalization)
  Sender: FDA-Public Use
  Company Number: DE-ABBVIE-15K-062-1460631-00

PATIENT
  Age: 51 Year
  Sex: Male

DRUGS (1)
  1. HUMIRA [Suspect]
     Active Substance: ADALIMUMAB
     Indication: RHEUMATOID ARTHRITIS
     Route: 058
     Dates: start: 20130503, end: 201503

REACTIONS (3)
  - Bursa removal [Recovering/Resolving]
  - Musculoskeletal pain [Recovering/Resolving]
  - Tendon calcification [Recovering/Resolving]

NARRATIVE: CASE EVENT DATE: 201507
